FAERS Safety Report 14115465 (Version 1)
Quarter: 2017Q4

REPORT INFORMATION
  Report Type: Spontaneous
  Country: CA (occurrence: CA)
  Receive Date: 20171023
  Receipt Date: 20171023
  Transmission Date: 20180321
  Serious: Yes (Other)
  Sender: FDA-Public Use
  Company Number: CA-ABBVIE-17K-028-2136411-00

PATIENT
  Age: 38 Year
  Sex: Male

DRUGS (3)
  1. AZATHIOPRINE. [Suspect]
     Active Substance: AZATHIOPRINE
     Indication: PRODUCT USED FOR UNKNOWN INDICATION
     Route: 065
  2. MEZAVANT [Concomitant]
     Active Substance: MESALAMINE
     Indication: PRODUCT USED FOR UNKNOWN INDICATION
     Route: 048
     Dates: start: 2010
  3. HUMIRA [Suspect]
     Active Substance: ADALIMUMAB
     Indication: COLITIS ULCERATIVE
     Route: 058

REACTIONS (13)
  - Anxiety [Unknown]
  - Gastrointestinal disorder [Unknown]
  - Defaecation urgency [Unknown]
  - Amnesia [Unknown]
  - Gastrointestinal fistula [Recovering/Resolving]
  - Pruritus [Unknown]
  - Rectal polyp [Unknown]
  - Colitis [Unknown]
  - Abscess intestinal [Unknown]
  - Abscess intestinal [Recovered/Resolved]
  - Gastrointestinal inflammation [Unknown]
  - Gastrointestinal oedema [Recovering/Resolving]
  - Rash [Unknown]

NARRATIVE: CASE EVENT DATE: 2012
